FAERS Safety Report 8043004-2 (Version None)
Quarter: 2012Q1

REPORT INFORMATION
  Report Type: 
  Country: None (occurrence: None)
  Receive Date: 20120112
  Receipt Date: 20120111
  Transmission Date: 20120608
  Serious: Yes (Hospitalization)
  Sender: FDA-Public Use
  Company Number: PHHO2009DE06465

PATIENT
  Sex: Female
  Weight: 88 kg

DRUGS (1)
  1. FTY [Suspect]
     Indication: MULTIPLE SCLEROSIS
     Dosage: 1.25 MG, UNK
     Route: 048
     Dates: start: 20080305, end: 20090121

REACTIONS (3)
  - VISION BLURRED [None]
  - UVEITIS [None]
  - MACULAR OEDEMA [None]
